FAERS Safety Report 19372363 (Version 1)
Quarter: 2021Q2

REPORT INFORMATION
  Report Type: Spontaneous
  Country: CN (occurrence: CN)
  Receive Date: 20210604
  Receipt Date: 20210604
  Transmission Date: 20210717
  Serious: Yes (Hospitalization, Other)
  Sender: FDA-Public Use
  Company Number: CN-PFIZER INC-2021586138

PATIENT
  Age: 73 Year
  Sex: Male
  Weight: 58 kg

DRUGS (3)
  1. SHE XIANG BAO XIN [Interacting]
     Active Substance: HERBALS
     Dosage: 45 MG, 3X/DAY
     Route: 048
  2. GANODERMA LUCIDUM SPORE [Interacting]
     Active Substance: HERBALS
     Dosage: 2 G, 3X/DAY
  3. VORICONAZOLE. [Suspect]
     Active Substance: VORICONAZOLE
     Indication: BRONCHOPULMONARY ASPERGILLOSIS
     Dosage: 200 MG, 2X/DAY
     Route: 048

REACTIONS (8)
  - Drug level below therapeutic [Recovered/Resolved]
  - Cough [Recovered/Resolved]
  - Nightmare [Recovered/Resolved]
  - Chloropsia [Recovered/Resolved]
  - Xanthopsia [Recovered/Resolved]
  - Drug interaction [Recovered/Resolved]
  - Drug level above therapeutic [Recovered/Resolved]
  - Hallucination [Recovered/Resolved]

NARRATIVE: CASE EVENT DATE: 2019
